FAERS Safety Report 23117147 (Version 1)
Quarter: 2023Q4

REPORT INFORMATION
  Report Type: Report from Study
  Country: US (occurrence: US)
  Receive Date: 20231027
  Receipt Date: 20231027
  Transmission Date: 20240110
  Serious: Yes (Other)
  Sender: FDA-Public Use
  Company Number: US-INCYTE CORPORATION-2023IN011132

PATIENT

DRUGS (2)
  1. JAKAFI [Suspect]
     Active Substance: RUXOLITINIB
     Indication: Polycythaemia vera
     Dosage: 20 MILLIGRAM, BID
     Route: 065
     Dates: start: 2019, end: 20231014
  2. JAKAFI [Suspect]
     Active Substance: RUXOLITINIB
     Dosage: 20 MILLIGRAM, BID
     Route: 065
     Dates: start: 20231024

REACTIONS (9)
  - Haemorrhage [Unknown]
  - Dysstasia [Unknown]
  - Illness [Unknown]
  - Rash [Unknown]
  - Pruritus [Unknown]
  - Product availability issue [Unknown]
  - Dizziness [Unknown]
  - Contusion [Unknown]
  - Headache [Unknown]
